FAERS Safety Report 10066157 (Version 3)
Quarter: 2014Q2

REPORT INFORMATION
  Report Type: Spontaneous
  Country: US (occurrence: US)
  Receive Date: 20140408
  Receipt Date: 20140520
  Transmission Date: 20141212
  Serious: No
  Sender: FDA-Public Use
  Company Number: US-PFIZER INC-2014096949

PATIENT
  Age: 46 Year
  Sex: Female

DRUGS (1)
  1. XELJANZ [Suspect]
     Dosage: UNK
     Dates: end: 201404

REACTIONS (5)
  - Headache [Unknown]
  - Malaise [Unknown]
  - Confusional state [Unknown]
  - Nasopharyngitis [Unknown]
  - Drug dose omission [Unknown]
